FAERS Safety Report 21762977 (Version 1)
Quarter: 2022Q4

REPORT INFORMATION
  Report Type: Spontaneous
  Country: FR (occurrence: FR)
  Receive Date: 20221221
  Receipt Date: 20221221
  Transmission Date: 20230112
  Serious: Yes (Hospitalization)
  Sender: FDA-Public Use
  Company Number: None

PATIENT
  Age: 54 Year
  Sex: Female
  Weight: 76 kg

DRUGS (12)
  1. TALTZ [Suspect]
     Active Substance: IXEKIZUMAB
     Indication: Psoriasis
     Dosage: UNK UNK, UNKNOWN
     Route: 065
     Dates: start: 202002, end: 202207
  2. TALTZ [Suspect]
     Active Substance: IXEKIZUMAB
     Indication: SAPHO syndrome
  3. COMIRNATY [Suspect]
     Active Substance: TOZINAMERAN
     Indication: COVID-19 immunisation
     Dosage: 1 DOSAGE FORM, UNKNOWN
     Route: 030
     Dates: start: 20210312, end: 20210312
  4. ZOPICLONE [Concomitant]
     Active Substance: ZOPICLONE
     Indication: Sleep disorder
     Dosage: 7.5 MG, DAILY
  5. DAIVONEX [Concomitant]
     Active Substance: CALCIPOTRIENE
     Indication: SAPHO syndrome
     Dosage: UNK, DAILY
  6. CHOLECALCIFEROL [Concomitant]
     Active Substance: CHOLECALCIFEROL
     Indication: Vitamin supplementation
     Dosage: UNK, MONTHLY (1/M)
  7. CLOBEX [CLOBETASOL PROPIONATE] [Concomitant]
     Indication: SAPHO syndrome
     Dosage: 1 DOSAGE FORM
  8. CETIRIZINE [Concomitant]
     Active Substance: CETIRIZINE HYDROCHLORIDE
     Indication: Product used for unknown indication
     Dosage: 10 MG, DAILY
  9. IXPRIM [Concomitant]
     Active Substance: ACETAMINOPHEN\TRAMADOL HYDROCHLORIDE
     Indication: SAPHO syndrome
     Dosage: 1 DOSAGE FORM
  10. ZOLOFT [Concomitant]
     Active Substance: SERTRALINE HYDROCHLORIDE
     Indication: Depression
     Dosage: 50 MG, DAILY
  11. ACETAMINOPHEN\ASCORBIC ACID [Concomitant]
     Active Substance: ACETAMINOPHEN\ASCORBIC ACID
     Indication: SAPHO syndrome
     Dosage: 1 DOSAGE FORM
  12. ALPRAZOLAM [Concomitant]
     Active Substance: ALPRAZOLAM
     Indication: Depression
     Dosage: .5 MG, EVERY 6 HRS

REACTIONS (3)
  - Colitis [Recovering/Resolving]
  - Vulvovaginal mycotic infection [Recovering/Resolving]
  - Oral fungal infection [Recovering/Resolving]

NARRATIVE: CASE EVENT DATE: 20210319
